FAERS Safety Report 4626783-3 (Version None)
Quarter: 2005Q2

REPORT INFORMATION
  Report Type: 
  Country: None (occurrence: None)
  Receive Date: 20050405
  Receipt Date: 20050330
  Transmission Date: 20051028
  Serious: Yes (Death)
  Sender: FDA-Public Use
  Company Number: US-KINGPHARMUSA00001-K200500443

PATIENT
  Age: 90 Year
  Sex: Female

DRUGS (4)
  1. ALTACE [Suspect]
     Indication: HYPERTENSION
     Dosage: 10 MG, QD
     Route: 048
     Dates: end: 20050318
  2. COUMADIN [Suspect]
     Dates: end: 20050318
  3. NOVOHYDRAZIDE [Concomitant]
     Indication: HYPERTENSION
     Route: 048
     Dates: end: 20050318
  4. ^INABICHE^ [Concomitant]
     Dosage: UNK, UNK
     Route: 048
     Dates: end: 20050318

REACTIONS (1)
  - CEREBRAL HAEMORRHAGE [None]
